FAERS Safety Report 4449215-7 (Version None)
Quarter: 2004Q3

REPORT INFORMATION
  Report Type: 
  Country: None (occurrence: None)
  Receive Date: 20040909
  Receipt Date: 20040823
  Transmission Date: 20050211
  Serious: Yes (Other)
  Sender: FDA-Public Use
  Company Number: US_0407104120

PATIENT
  Age: 69 Year
  Sex: Female

DRUGS (2)
  1. EVISTA [Suspect]
     Dosage: 60 MG/1 DAY
     Dates: start: 19990101, end: 20000101
  2. MIACALCIN [Concomitant]

REACTIONS (8)
  - CHOLECYSTECTOMY [None]
  - COMPRESSION FRACTURE [None]
  - DISEASE RECURRENCE [None]
  - HAEMORRHAGIC STROKE [None]
  - PLEURAL EFFUSION [None]
  - PNEUMONIA [None]
  - POST PROCEDURAL COMPLICATION [None]
  - THORACIC VERTEBRAL FRACTURE [None]
